FAERS Safety Report 9634106 (Version 1)
Quarter: 2013Q4

REPORT INFORMATION
  Report Type: Spontaneous
  Country: JP (occurrence: JP)
  Receive Date: 20131021
  Receipt Date: 20131021
  Transmission Date: 20140711
  Serious: Yes (Other)
  Sender: FDA-Public Use
  Company Number: JP-009507513-1310JPN005795

PATIENT
  Age: 44 Year
  Sex: Male

DRUGS (5)
  1. FAMOTIDINE [Suspect]
     Indication: PEPTIC ULCER HAEMORRHAGE
     Dosage: UNK
     Route: 048
     Dates: start: 2013
  2. PARIET [Concomitant]
     Dosage: UNK
     Dates: end: 2013
  3. CALCIUM (UNSPECIFIED) [Concomitant]
     Dosage: UNK
     Route: 048
     Dates: start: 2013
  4. VITAMIN D (UNSPECIFIED) [Concomitant]
     Dosage: UNK
     Dates: start: 2013
  5. MAGNESIUM OXIDE [Concomitant]
     Dosage: UNK
     Route: 048
     Dates: start: 2013, end: 2013

REACTIONS (2)
  - Peptic ulcer haemorrhage [Unknown]
  - Drug ineffective [Unknown]
